FAERS Safety Report 16813285 (Version 1)
Quarter: 2019Q3

REPORT INFORMATION
  Report Type: Spontaneous
  Country: US (occurrence: US)
  Receive Date: 20190916
  Receipt Date: 20190916
  Transmission Date: 20191005
  Serious: Yes (Life-Threatening, Hospitalization)
  Sender: FDA-Public Use
  Company Number: US-TEVA-2019-US-1108532

PATIENT
  Age: 35 Year
  Sex: Male

DRUGS (4)
  1. PHENCYCLIDINE [Concomitant]
     Active Substance: PHENCYCLIDINE
     Route: 065
  2. BUPRENORPHINE. [Suspect]
     Active Substance: BUPRENORPHINE
     Route: 065
  3. COCAINE [Concomitant]
     Active Substance: COCAINE
     Route: 065
  4. ALPRAZOLAM. [Concomitant]
     Active Substance: ALPRAZOLAM
     Route: 065

REACTIONS (11)
  - Hypotension [Recovered/Resolved]
  - Deafness neurosensory [Recovered/Resolved]
  - Respiratory depression [Recovered/Resolved]
  - Troponin T increased [Recovered/Resolved]
  - Intentional product misuse [Recovered/Resolved]
  - Vestibular ischaemia [Recovered/Resolved]
  - Ischaemic hepatitis [Recovered/Resolved]
  - Rhabdomyolysis [Recovered/Resolved]
  - Unresponsive to stimuli [Recovered/Resolved]
  - Acute kidney injury [Recovered/Resolved]
  - Intentional overdose [Recovered/Resolved]
